FAERS Safety Report 9335684 (Version 2)
Quarter: 2013Q2

REPORT INFORMATION
  Report Type: Spontaneous
  Country: GR (occurrence: GR)
  Receive Date: 20130607
  Receipt Date: 20130612
  Transmission Date: 20140414
  Serious: Yes (Other)
  Sender: FDA-Public Use
  Company Number: GR-ROCHE-1233263

PATIENT
  Age: 23 Year
  Sex: Male

DRUGS (2)
  1. XOLAIR [Suspect]
     Indication: ASTHMA
     Route: 065
     Dates: start: 20100128
  2. XOLAIR [Suspect]
     Route: 065
     Dates: start: 20100324

REACTIONS (2)
  - Anaphylactic reaction [Recovered/Resolved]
  - Overdose [Unknown]
